FAERS Safety Report 4793408-6 (Version None)
Quarter: 2005Q4

REPORT INFORMATION
  Report Type: 
  Country: None (occurrence: None)
  Receive Date: 20051011
  Receipt Date: 20050930
  Transmission Date: 20060501
  Serious: Yes (Other)
  Sender: FDA-Public Use
  Company Number: FR-JNJFOC-20050405079

PATIENT
  Sex: Male
  Weight: 88 kg

DRUGS (3)
  1. RISPERDAL CONSTA [Suspect]
     Route: 030
  2. RISPERDAL CONSTA [Suspect]
     Dosage: PRIOR TO ENROLMENT IN THE STUDY.
     Route: 030
  3. RISPERIDONE [Concomitant]
     Route: 048

REACTIONS (2)
  - ACTIVATED PARTIAL THROMBOPLASTIN TIME PROLONGED [None]
  - COAGULOPATHY [None]
